FAERS Safety Report 6933666-2 (Version None)
Quarter: 2010Q3

REPORT INFORMATION
  Report Type: 
  Country: None (occurrence: None)
  Receive Date: 20100820
  Receipt Date: 20100817
  Transmission Date: 20110219
  Serious: Yes (Death, Hospitalization)
  Sender: FDA-Public Use
  Company Number: CA-PFIZER INC-2007051890

PATIENT
  Age: 70 Year
  Sex: Female
  Weight: 40 kg

DRUGS (6)
  1. SUNITINIB MALATE [Suspect]
     Indication: RENAL CELL CARCINOMA
     Dosage: 25 MG, 1X/DAY
     Route: 048
     Dates: start: 20060711, end: 20070613
  2. ACETAMINOPHEN [Concomitant]
     Dosage: UNK
     Route: 048
     Dates: start: 20060601
  3. HYDROCHLOROTHIAZIDE [Concomitant]
     Dosage: UNK
     Route: 048
     Dates: start: 20010101
  4. OXYGEN [Concomitant]
     Dosage: UNK
     Route: 048
     Dates: start: 20060401
  5. RANIDINE [Concomitant]
     Dosage: UNK
     Route: 048
     Dates: start: 20070426
  6. LEVOTHYROXINE SODIUM [Concomitant]
     Dosage: UNK
     Route: 048
     Dates: start: 20070516

REACTIONS (4)
  - ASTHENIA [None]
  - DEATH [None]
  - MALIGNANT NEOPLASM PROGRESSION [None]
  - METASTATIC RENAL CELL CARCINOMA [None]
